FAERS Safety Report 21758478 (Version 1)
Quarter: 2022Q4

REPORT INFORMATION
  Report Type: Spontaneous
  Country: US (occurrence: None)
  Receive Date: 20221221
  Receipt Date: 20221221
  Transmission Date: 20230113
  Serious: No
  Sender: FDA-Public Use
  Company Number: US-ROCHE-3028096

PATIENT

DRUGS (6)
  1. GAZYVA [Suspect]
     Active Substance: OBINUTUZUMAB
     Indication: Kidney transplant rejection
     Dosage: NO
     Route: 042
     Dates: start: 20210409, end: 20210409
  2. GAZYVA [Suspect]
     Active Substance: OBINUTUZUMAB
     Dosage: NO
     Route: 042
     Dates: start: 20210410, end: 20210410
  3. GAZYVA [Suspect]
     Active Substance: OBINUTUZUMAB
     Dosage: YES
     Route: 042
     Dates: start: 20210417
  4. TYLENOL [Concomitant]
     Active Substance: ACETAMINOPHEN
     Indication: Premedication
     Route: 048
     Dates: start: 20210409, end: 20210409
  5. BENADRYL [Concomitant]
     Active Substance: DIPHENHYDRAMINE HYDROCHLORIDE
     Indication: Premedication
     Route: 048
     Dates: start: 20210409, end: 20210409
  6. METHYLPREDNISOLONE [Concomitant]
     Active Substance: METHYLPREDNISOLONE
     Indication: Premedication
     Route: 042
     Dates: start: 20210409, end: 20210409

REACTIONS (2)
  - Off label use [Unknown]
  - No adverse event [Unknown]

NARRATIVE: CASE EVENT DATE: 20210409
